FAERS Safety Report 6980689-3 (Version None)
Quarter: 2010Q3

REPORT INFORMATION
  Report Type: 
  Country: None (occurrence: None)
  Receive Date: 20100914
  Receipt Date: 20100819
  Transmission Date: 20110219
  Serious: Yes (Hospitalization, Other)
  Sender: FDA-Public Use
  Company Number: US-BAYER-201015087NA

PATIENT
  Age: 47 Year
  Sex: Female
  Weight: 103 kg

DRUGS (3)
  1. YASMIN [Suspect]
     Indication: ORAL CONTRACEPTION
     Route: 048
     Dates: start: 20050301, end: 20080101
  2. LEXAPRO [Concomitant]
     Indication: DEPRESSION
  3. PRILOSEC [Concomitant]
     Indication: GASTROOESOPHAGEAL REFLUX DISEASE

REACTIONS (5)
  - ABDOMINAL PAIN [None]
  - BILIARY COLIC [None]
  - CHOLECYSTITIS CHRONIC [None]
  - CHOLELITHIASIS [None]
  - WEIGHT INCREASED [None]
